FAERS Safety Report 9170736 (Version 1)
Quarter: 2013Q1

REPORT INFORMATION
  Report Type: Spontaneous
  Country: US (occurrence: None)
  Receive Date: 20130308
  Receipt Date: 20130308
  Transmission Date: 20140127
  Serious: Yes (Hospitalization, Other)
  Sender: FDA-Public Use
  Company Number: 2013P1002832

PATIENT
  Age: 5 Year
  Sex: Female

DRUGS (4)
  1. PHENOBARBITAL [Suspect]
     Indication: CONVULSION
  2. AMOXICILLIN [Concomitant]
  3. CEFDINIR [Concomitant]
  4. CEFTRIAXONE [Concomitant]

REACTIONS (8)
  - Drug reaction with eosinophilia and systemic symptoms [None]
  - Sepsis [None]
  - Anaemia [None]
  - Thrombocytopenia [None]
  - Hypotension [None]
  - Tachycardia [None]
  - Convulsion [None]
  - Blood culture positive [None]
